FAERS Safety Report 9592899 (Version 1)
Quarter: 2013Q3

REPORT INFORMATION
  Report Type: Spontaneous
  Country: US (occurrence: None)
  Receive Date: 20130930
  Receipt Date: 20130930
  Transmission Date: 20140515
  Serious: Yes (Other)
  Sender: FDA-Public Use
  Company Number: 1000046043

PATIENT
  Age: 39 Year
  Sex: Female

DRUGS (3)
  1. LINZESS [Suspect]
     Indication: CONSTIPATION
     Route: 048
     Dates: start: 201305
  2. MIRALAX(POLYETHYLENE GLYCOL)(POLYETHYLENE GLYCOL) [Concomitant]
  3. LACTULOSE(LACTULOSE)(LACTUOSE) [Concomitant]

REACTIONS (1)
  - Abdominal distension [None]
